FAERS Safety Report 8880949 (Version 1)
Quarter: 2012Q4

REPORT INFORMATION
  Report Type: Report from Study
  Country: DE (occurrence: JP)
  Receive Date: 20121101
  Receipt Date: 20121101
  Transmission Date: 20130627
  Serious: Yes (Other)
  Sender: FDA-Public Use
  Company Number: JP-BRISTOL-MYERS SQUIBB COMPANY-17055278

PATIENT
  Age: 54 Year
  Sex: Female

DRUGS (6)
  1. ERBITUX SOLN FOR INF 5MG/ML [Suspect]
     Indication: RECTAL CANCER
     Dosage: 85.7143MG
skipped a week in between
31Jul09:365mg
     Route: 041
     Dates: start: 20090721
  2. IRINOTECAN [Concomitant]
     Indication: RECTAL CANCER
     Dosage: 19Oct09:140mg-1/2wk
     Route: 041
     Dates: start: 20090721
  3. VENA [Concomitant]
     Indication: PREMEDICATION
     Dosage: tabs
     Route: 048
     Dates: start: 20090721
  4. DECADRON [Concomitant]
     Indication: PREMEDICATION
     Route: 041
     Dates: start: 20090721
  5. SINSERON [Concomitant]
     Indication: ANTIEMETIC SUPPORTIVE CARE
     Dosage: tablet
     Route: 048
     Dates: start: 20090721
  6. DECADRON [Concomitant]
     Dosage: Tablet
     Route: 048
     Dates: start: 20090721

REACTIONS (2)
  - Cerebral infarction [Recovering/Resolving]
  - Infusion related reaction [Recovered/Resolved]
